FAERS Safety Report 24397852 (Version 1)
Quarter: 2024Q4

REPORT INFORMATION
  Report Type: Spontaneous
  Country: US (occurrence: None)
  Receive Date: 20241003
  Receipt Date: 20241003
  Transmission Date: 20250114
  Serious: Yes (Hospitalization)
  Sender: Public
  Company Number: None

PATIENT
  Age: 66 Year
  Sex: Male
  Weight: 77 kg

DRUGS (3)
  1. RIVAROXABAN [Suspect]
     Active Substance: RIVAROXABAN
     Indication: Atrial fibrillation
     Dosage: FREQUENCY : DAILY;?
     Route: 048
  2. BRILINTA [Suspect]
     Active Substance: TICAGRELOR
     Indication: Vascular device user
     Dosage: FREQUENCY : TWICE A DAY;?
     Route: 048
  3. ASPIRIN [Suspect]
     Active Substance: ASPIRIN

REACTIONS (5)
  - Gastrointestinal haemorrhage [None]
  - Blood loss anaemia [None]
  - Gastrointestinal arteriovenous malformation [None]
  - Therapy interrupted [None]
  - Atrial fibrillation [None]

NARRATIVE: CASE EVENT DATE: 20231019
